FAERS Safety Report 8458658-6 (Version None)
Quarter: 2012Q2

REPORT INFORMATION
  Report Type: 
  Country: None (occurrence: None)
  Receive Date: 20120622
  Receipt Date: 20120613
  Transmission Date: 20120825
  Serious: Yes (Hospitalization, Disabling)
  Sender: FDA-Public Use
  Company Number: JP-SANOFI-AVENTIS-2012SA008164

PATIENT
  Age: 71 Year
  Sex: Male
  Weight: 53 kg

DRUGS (4)
  1. FAMOTIDINE [Concomitant]
     Indication: PROPHYLAXIS
     Dates: start: 20100320, end: 20120201
  2. PLAVIX [Suspect]
     Indication: CEREBRAL INFARCTION
     Route: 065
     Dates: start: 20100327, end: 20120111
  3. CANDESARTAN CILEXETIL AND HYDROCHLOROTHIAZIDE [Concomitant]
     Indication: HYPERTENSION
     Dates: start: 20100409
  4. CALBLOCK [Concomitant]
     Indication: HYPERTENSION
     Dates: start: 20100610, end: 20120201

REACTIONS (6)
  - HYPOACUSIS [None]
  - HEADACHE [None]
  - CEREBELLAR HAEMORRHAGE [None]
  - HEMIPLEGIA [None]
  - DIZZINESS [None]
  - VOMITING [None]
